FAERS Safety Report 13091097 (Version 1)
Quarter: 2017Q1

REPORT INFORMATION
  Report Type: Spontaneous
  Country: US (occurrence: US)
  Receive Date: 20170106
  Receipt Date: 20170106
  Transmission Date: 20170428
  Serious: Yes (Other)
  Sender: FDA-Public Use
  Company Number: US-AMGEN-USASP2016185374

PATIENT
  Age: 73 Year
  Sex: Female
  Weight: 90.72 kg

DRUGS (11)
  1. CLINDAMYCIN HCL [Suspect]
     Active Substance: CLINDAMYCIN HYDROCHLORIDE
     Indication: SINUSITIS
     Dosage: 150 MG, UNK
     Route: 065
  2. VITAMIN B COMPLEX WITH C [Concomitant]
     Active Substance: ASCORBIC ACID\CALCIUM PANTOTHENATE\CYANOCOBALAMIN\NIACINAMIDE\PYRIDOXINE HYDROCHLORIDE\RIBOFLAVIN\THIAMINE MONONITRATE
     Dosage: UNK, QD
     Dates: start: 2009
  3. CLINDAMYCIN HCL [Suspect]
     Active Substance: CLINDAMYCIN HYDROCHLORIDE
     Dosage: 300 MG, TID
     Route: 065
     Dates: start: 20160914, end: 20160920
  4. ASPIRIN. [Concomitant]
     Active Substance: ASPIRIN
     Dosage: 81 MG, QD
  5. XELJANZ [Suspect]
     Active Substance: TOFACITINIB CITRATE
     Indication: RHEUMATOID ARTHRITIS
     Dosage: 11 MG, QD
     Route: 048
     Dates: start: 20160811, end: 201609
  6. VENTOLIN [Suspect]
     Active Substance: ALBUTEROL SULFATE
     Indication: WHEEZING
     Dosage: 90 MUG, TWO PUFFS FOUR TIMES
     Route: 065
  7. CALCIUM PLUS D3 [Concomitant]
     Dosage: 1200 MG, QD
     Dates: start: 2009
  8. ENBREL [Suspect]
     Active Substance: ETANERCEPT
     Indication: PRODUCT USED FOR UNKNOWN INDICATION
     Dosage: 50 MG, QWK
     Route: 065
  9. XELJANZ [Suspect]
     Active Substance: TOFACITINIB CITRATE
     Dosage: UNK
     Route: 065
     Dates: start: 201609
  10. FOLIC ACID. [Concomitant]
     Active Substance: FOLIC ACID
     Dosage: 800 MG, QD
     Dates: start: 2009
  11. LEVOTHYROXINE. [Concomitant]
     Active Substance: LEVOTHYROXINE
     Indication: THYROID DISORDER
     Dosage: 125 MG, QD
     Dates: start: 1983

REACTIONS (24)
  - Blood cholesterol abnormal [Unknown]
  - Flatulence [Unknown]
  - Abdominal pain upper [Unknown]
  - Nervousness [Unknown]
  - Hypertrophic cardiomyopathy [Recovering/Resolving]
  - Wheezing [Unknown]
  - Diarrhoea [Recovered/Resolved]
  - Swelling [Unknown]
  - Viral infection [Not Recovered/Not Resolved]
  - Nasopharyngitis [Not Recovered/Not Resolved]
  - Bladder disorder [Unknown]
  - Drug effect decreased [Unknown]
  - Blood pressure abnormal [Unknown]
  - Peripheral swelling [Unknown]
  - Vitamin D deficiency [Unknown]
  - Upper-airway cough syndrome [Unknown]
  - Arthropathy [Unknown]
  - Cough [Unknown]
  - Anxiety [Unknown]
  - Abdominal discomfort [Unknown]
  - Arthritis [Unknown]
  - Sinusitis [Recovering/Resolving]
  - Knee arthroplasty [Unknown]
  - Vomiting [Unknown]

NARRATIVE: CASE EVENT DATE: 2009
